FAERS Safety Report 5616694-9 (Version None)
Quarter: 2008Q1

REPORT INFORMATION
  Report Type: 
  Country: None (occurrence: None)
  Receive Date: 20080207
  Receipt Date: 20080130
  Transmission Date: 20080703
  Serious: Yes (Hospitalization, Other)
  Sender: FDA-Public Use
  Company Number: PHBS2008SA01576

PATIENT
  Age: 43 Year
  Sex: Female

DRUGS (1)
  1. DICLOFENAC SODIUM [Suspect]

REACTIONS (28)
  - ACANTHOSIS [None]
  - ACINETOBACTER INFECTION [None]
  - ARTHRITIS [None]
  - BIOPSY SKIN ABNORMAL [None]
  - BLOOD CULTURE POSITIVE [None]
  - BLOOD GLUCOSE INCREASED [None]
  - BLOOD UREA INCREASED [None]
  - CITROBACTER INFECTION [None]
  - DRUG ERUPTION [None]
  - ECTHYMA [None]
  - GAMMA-GLUTAMYLTRANSFERASE INCREASED [None]
  - GANGRENE [None]
  - INFLAMMATION [None]
  - LEUKOCYTOCLASTIC VASCULITIS [None]
  - MOUTH ULCERATION [None]
  - NECROSIS [None]
  - ODYNOPHAGIA [None]
  - OEDEMA PERIPHERAL [None]
  - PAIN [None]
  - POLYARTHRITIS [None]
  - PSEUDOMONAS INFECTION [None]
  - PYREXIA [None]
  - RASH ERYTHEMATOUS [None]
  - RASH MACULO-PAPULAR [None]
  - RED BLOOD CELL SEDIMENTATION RATE INCREASED [None]
  - RHEUMATOID FACTOR INCREASED [None]
  - STREPTOCOCCAL IDENTIFICATION TEST POSITIVE [None]
  - VASCULITIS [None]
